FAERS Safety Report 7948578-5 (Version None)
Quarter: 2011Q4

REPORT INFORMATION
  Report Type: 
  Country: None (occurrence: None)
  Receive Date: 20111128
  Receipt Date: 20111128
  Transmission Date: 20120403
  Serious: Yes (Life-Threatening)
  Sender: FDA-Public Use
  Company Number: None

PATIENT
  Age: 58 Year
  Sex: Female
  Weight: 68.0396 kg

DRUGS (1)
  1. IMITREX STATDOSE [Suspect]
     Indication: MIGRAINE
     Dosage: PT DID NOT KNOW ONE DOSE SUBCUTANEOUSLY
     Route: 058
     Dates: start: 20110627, end: 20110627

REACTIONS (3)
  - PAIN IN EXTREMITY [None]
  - HYPERHIDROSIS [None]
  - MYOCARDIAL INFARCTION [None]
